FAERS Safety Report 6299702-4 (Version None)
Quarter: 2009Q3

REPORT INFORMATION
  Report Type: 
  Country: None (occurrence: None)
  Receive Date: 20090806
  Receipt Date: 20090728
  Transmission Date: 20100115
  Serious: Yes (Other)
  Sender: FDA-Public Use
  Company Number: GB-PFIZER INC-2009249222

PATIENT
  Age: 47 Year

DRUGS (1)
  1. NICOTINE [Suspect]
     Dosage: 2.5 BOTTLES PER WEEK
     Route: 045

REACTIONS (2)
  - DEPENDENCE [None]
  - INCORRECT DRUG ADMINISTRATION DURATION [None]
